FAERS Safety Report 11458177 (Version 3)
Quarter: 2015Q4

REPORT INFORMATION
  Report Type: Spontaneous
  Country: IT (occurrence: IT)
  Receive Date: 20150904
  Receipt Date: 20151218
  Transmission Date: 20160304
  Serious: Yes (Hospitalization)
  Sender: FDA-Public Use
  Company Number: IT-SA-2015SA131036

PATIENT
  Age: 79 Year
  Sex: Female

DRUGS (2)
  1. CLEXANE [Suspect]
     Active Substance: ENOXAPARIN SODIUM
     Route: 058
  2. AUGMENTIN [Suspect]
     Active Substance: AMOXICILLIN\CLAVULANATE POTASSIUM
     Indication: SKIN ULCER
     Dosage: 875MG+125MG FILM COATED TABLET
     Route: 048

REACTIONS (4)
  - Hypersensitivity [Recovering/Resolving]
  - Angioedema [Recovering/Resolving]
  - Transaminases increased [Recovering/Resolving]
  - Injection site erythema [Recovering/Resolving]

NARRATIVE: CASE EVENT DATE: 20150606
